FAERS Safety Report 8983178 (Version 2)
Quarter: 2013Q1

REPORT INFORMATION
  Report Type: Spontaneous
  Country: SE (occurrence: SE)
  Receive Date: 20121224
  Receipt Date: 20130304
  Transmission Date: 20140127
  Serious: No
  Sender: FDA-Public Use
  Company Number: PHHY2012SE117931

PATIENT
  Age: 47 Year
  Sex: Female

DRUGS (1)
  1. VOLTAREN [Suspect]
     Indication: MIGRAINE
     Dosage: UNK UKN, UNK
     Dates: end: 20120511

REACTIONS (1)
  - Haematoma [Unknown]
